FAERS Safety Report 10421801 (Version 3)
Quarter: 2020Q3

REPORT INFORMATION
  Report Type: Spontaneous
  Country: GB (occurrence: GB)
  Receive Date: 20140901
  Receipt Date: 20200923
  Transmission Date: 20201102
  Serious: Yes (Hospitalization, Other)
  Sender: FDA-Public Use
  Company Number: GB-AUROBINDO-AUR-APL-2014-08957

PATIENT
  Age: 58 Year
  Sex: Male

DRUGS (4)
  1. DOXAZOSIN [Suspect]
     Active Substance: DOXAZOSIN MESYLATE
     Indication: HYPERTENSION
     Dosage: 82 MILLIGRAM
     Route: 065
  2. RAMIPRIL. [Suspect]
     Active Substance: RAMIPRIL
     Indication: HYPERTENSION
     Dosage: 500 MILLIGRAM
     Route: 065
  3. AMLODIPINE [Suspect]
     Active Substance: AMLODIPINE BESYLATE
     Indication: HYPERTENSION
     Dosage: 500 MILLIGRAM
     Route: 065
  4. ALCOHOL. [Concomitant]
     Active Substance: ALCOHOL
     Indication: PRODUCT USED FOR UNKNOWN INDICATION
     Dosage: UNK
     Route: 065

REACTIONS (3)
  - Acidosis [Recovering/Resolving]
  - Hypotension [Recovering/Resolving]
  - Overdose [Recovering/Resolving]
